FAERS Safety Report 9148008 (Version 3)
Quarter: 2013Q2

REPORT INFORMATION
  Report Type: Spontaneous
  Country: HU (occurrence: HU)
  Receive Date: 20130308
  Receipt Date: 20130423
  Transmission Date: 20140414
  Serious: Yes (Other)
  Sender: FDA-Public Use
  Company Number: HU-AMGEN-HUNSP2013015580

PATIENT
  Age: 56 Year
  Sex: Female
  Weight: 57 kg

DRUGS (4)
  1. ENBREL [Suspect]
     Indication: RHEUMATOID ARTHRITIS
     Dosage: 1X A MONTH STOPPED AFTER THE 10TH MONTHLY TREATMENT
     Route: 058
     Dates: start: 201202
  2. CIMZIA [Suspect]
     Indication: RHEUMATOID ARTHRITIS
     Dosage: UNK
  3. MEDROL                             /00049601/ [Concomitant]
     Dosage: UNK
     Dates: end: 201208
  4. DICLOFENAC [Concomitant]
     Dosage: 100 MG, UNK
     Dates: end: 201208

REACTIONS (1)
  - Metastases to lung [Unknown]
